FAERS Safety Report 4513392-X (Version None)
Quarter: 2004Q4

REPORT INFORMATION
  Report Type: 
  Country: None (occurrence: None)
  Receive Date: 20041130
  Receipt Date: 20040908
  Transmission Date: 20050328
  Serious: No
  Sender: FDA-Public Use
  Company Number: US-BRISTOL-MYERS SQUIBB COMPANY-12695607

PATIENT
  Age: 68 Year
  Sex: Female
  Weight: 56 kg

DRUGS (13)
  1. ERBITUX [Suspect]
     Indication: COLORECTAL CANCER METASTATIC
     Dosage: ON HOLD
     Route: 042
  2. ANZEMET [Concomitant]
     Indication: PREMEDICATION
     Route: 042
  3. DECADRON [Concomitant]
     Indication: PREMEDICATION
     Route: 042
  4. BENADRYL [Concomitant]
     Indication: PREMEDICATION
     Route: 042
  5. ATROPINE [Concomitant]
     Indication: PREMEDICATION
     Route: 042
  6. PREMARIN [Concomitant]
  7. MIRALAX [Concomitant]
  8. TYLENOL (CAPLET) [Concomitant]
  9. PEPCID [Concomitant]
  10. PROGESTERONE [Concomitant]
  11. CENTRUM [Concomitant]
  12. IMODIUM [Concomitant]
  13. GINSANA [Concomitant]

REACTIONS (1)
  - HYPERTENSION [None]
